FAERS Safety Report 7083218-1 (Version None)
Quarter: 2010Q4

REPORT INFORMATION
  Report Type: 
  Country: None (occurrence: None)
  Receive Date: 20101104
  Receipt Date: 20090309
  Transmission Date: 20110411
  Serious: No
  Sender: FDA-Public Use
  Company Number: US-KINGPHARMUSA00001-K200900258

PATIENT
  Sex: Female
  Weight: 61.224 kg

DRUGS (1)
  1. FLECTOR [Suspect]
     Indication: ROTATOR CUFF SYNDROME
     Dosage: 0.5 PATCH, BID
     Route: 061
     Dates: start: 20081201, end: 20090308

REACTIONS (6)
  - APPLICATION SITE BLEEDING [None]
  - APPLICATION SITE DRYNESS [None]
  - APPLICATION SITE RASH [None]
  - APPLICATION SITE VESICLES [None]
  - ERYTHEMA [None]
  - RASH [None]
